FAERS Safety Report 8432584-0 (Version None)
Quarter: 2012Q2

REPORT INFORMATION
  Report Type: 
  Country: None (occurrence: None)
  Receive Date: 20120613
  Receipt Date: 20120608
  Transmission Date: 20120825
  Serious: Yes (Other)
  Sender: FDA-Public Use
  Company Number: US-AMGEN-USASP2012035938

PATIENT
  Age: 36 Year
  Sex: Female
  Weight: 88.6 kg

DRUGS (4)
  1. PEGFILGRASTIM [Suspect]
     Indication: BREAST CANCER
     Dosage: 6 MG, UNK
     Route: 058
     Dates: start: 20120213
  2. BEVACIZUMAB [Suspect]
     Indication: BREAST CANCER
     Dosage: 10 MG/KG, UNK
     Route: 042
     Dates: start: 20090212
  3. DOXORUBICIN HCL [Suspect]
     Indication: BREAST CANCER
     Dosage: 119 MG, UNK
     Route: 042
     Dates: start: 20090212
  4. CYCLOPHOSPHAMIDE [Suspect]
     Indication: BREAST CANCER
     Dosage: 1188 MG, UNK
     Route: 042
     Dates: start: 20090212

REACTIONS (1)
  - WOUND DEHISCENCE [None]
